FAERS Safety Report 7599776-4 (Version None)
Quarter: 2011Q3

REPORT INFORMATION
  Report Type: 
  Country: None (occurrence: None)
  Receive Date: 20110711
  Receipt Date: 20110629
  Transmission Date: 20111222
  Serious: Yes (Hospitalization, Other)
  Sender: FDA-Public Use
  Company Number: US-BAYER-200944113NA

PATIENT
  Age: 47 Year
  Sex: Female
  Weight: 75 kg

DRUGS (11)
  1. YAZ [Suspect]
     Indication: ACNE
  2. ORTHO-NOVUM 7/7/7-21 [Concomitant]
     Dosage: UNK
     Dates: start: 20000101
  3. METHOCARBAMOL [Concomitant]
     Indication: MUSCLE RELAXANT THERAPY
     Dosage: 500 MG, UNK
     Route: 048
     Dates: start: 20080201
  4. YASMIN [Suspect]
     Indication: ACNE
     Dosage: UNK UNK, QD
     Route: 048
     Dates: start: 20070101, end: 20080101
  5. YASMIN [Suspect]
  6. ORTHO-NOVUM 7/7/7-21 [Concomitant]
     Dosage: UNK
     Dates: start: 20061129, end: 20080209
  7. YASMIN [Suspect]
     Indication: PREMENSTRUAL SYNDROME
  8. DICLOFENAC SODIUM [Concomitant]
     Indication: INFLAMMATION
     Dosage: 75 MG, UNK
     Route: 048
     Dates: start: 20080201
  9. YAZ [Suspect]
     Indication: PREMENSTRUAL SYNDROME
     Route: 048
     Dates: start: 20070101, end: 20080201
  10. CLARITIN-D 24 HOUR [Concomitant]
  11. YAZ [Suspect]

REACTIONS (2)
  - OEDEMA PERIPHERAL [None]
  - DEEP VEIN THROMBOSIS [None]
